FAERS Safety Report 20924814 (Version 1)
Quarter: 2022Q2

REPORT INFORMATION
  Report Type: Spontaneous
  Country: US (occurrence: US)
  Receive Date: 20220607
  Receipt Date: 20220607
  Transmission Date: 20220721
  Serious: No
  Sender: FDA-Public Use
  Company Number: US-PHARMAESSENTIA CORPORATION-US-2022-PEC-000578

PATIENT

DRUGS (2)
  1. BESREMI [Suspect]
     Active Substance: ROPEGINTERFERON ALFA-2B-NJFT
     Indication: Essential thrombocythaemia
     Dosage: 100, ONCE EVERY 2 WEEKS
     Route: 058
     Dates: start: 20220404
  2. BESREMI [Suspect]
     Active Substance: ROPEGINTERFERON ALFA-2B-NJFT
     Dosage: 150 MCG ONCE EVERY TWO WEEKS
     Route: 058

REACTIONS (6)
  - Fatigue [Recovered/Resolved]
  - Pain [Recovered/Resolved]
  - Headache [Unknown]
  - Wrong dose [Unknown]
  - Drug dose titration not performed [Unknown]
  - Off label use [Unknown]

NARRATIVE: CASE EVENT DATE: 20220401
